FAERS Safety Report 6805680-9 (Version None)
Quarter: 2010Q2

REPORT INFORMATION
  Report Type: 
  Country: None (occurrence: None)
  Receive Date: 20100628
  Receipt Date: 20080103
  Transmission Date: 20101027
  Serious: No
  Sender: FDA-Public Use
  Company Number: US-PFIZER INC-2007087310

PATIENT
  Sex: Female
  Weight: 82 kg

DRUGS (5)
  1. GENOTROPIN [Suspect]
     Indication: HYPOPITUITARISM
     Route: 058
     Dates: start: 20030101, end: 20030101
  2. PREDNISONE [Concomitant]
  3. CELLCEPT [Concomitant]
  4. LEVOXYL [Concomitant]
  5. ESTROGENS [Concomitant]

REACTIONS (1)
  - BLOOD THYROID STIMULATING HORMONE DECREASED [None]
